FAERS Safety Report 24613678 (Version 1)
Quarter: 2024Q4

REPORT INFORMATION
  Report Type: Spontaneous
  Country: US (occurrence: US)
  Receive Date: 20241113
  Receipt Date: 20241113
  Transmission Date: 20250115
  Serious: Yes (Other)
  Sender: ALEXION PHARMACEUTICALS
  Company Number: US-AstraZeneca-2024A185457

PATIENT
  Age: 89 Year
  Weight: 82.993 kg

DRUGS (4)
  1. BYDUREON [Suspect]
     Active Substance: EXENATIDE
     Indication: Diabetes mellitus
     Dosage: 2 MILLIGRAM, QW
  2. BYDUREON [Suspect]
     Active Substance: EXENATIDE
     Dosage: 2 MILLIGRAM, QW
  3. BYDUREON [Suspect]
     Active Substance: EXENATIDE
     Dosage: 2 MILLIGRAM, QW
  4. BYDUREON [Suspect]
     Active Substance: EXENATIDE
     Dosage: 2 MILLIGRAM, QW

REACTIONS (10)
  - Drug dose omission by device [Unknown]
  - Device delivery system issue [Unknown]
  - Incorrect disposal of product [Unknown]
  - Device use issue [Unknown]
  - Blood glucose increased [Unknown]
  - Diabetic ketoacidosis [Unknown]
  - Blood glucose abnormal [Unknown]
  - Renal disorder [Unknown]
  - Glycosylated haemoglobin increased [Unknown]
  - Needle issue [Unknown]
